FAERS Safety Report 15515291 (Version 6)
Quarter: 2019Q1

REPORT INFORMATION
  Report Type: Spontaneous
  Country: US (occurrence: US)
  Receive Date: 20181017
  Receipt Date: 20190104
  Transmission Date: 20190417
  Serious: Yes (Other)
  Sender: FDA-Public Use
  Company Number: US-CELGENEUS-USA-20181004448

PATIENT
  Age: 60 Year
  Sex: Female

DRUGS (9)
  1. CALCIUM D [Concomitant]
     Active Substance: CALCIUM\VITAMIN D
     Indication: PRODUCT USED FOR UNKNOWN INDICATION
     Dosage: 800-400
     Route: 048
     Dates: start: 20180219
  2. MULTIVITAMIN WOMENS [Concomitant]
     Indication: PRODUCT USED FOR UNKNOWN INDICATION
     Route: 048
     Dates: start: 20180131
  3. OTEZLA [Suspect]
     Active Substance: APREMILAST
     Indication: OFF LABEL USE
     Dosage: 60 MILLIGRAM
     Route: 048
     Dates: start: 20181017
  4. DIFFERIN [Concomitant]
     Active Substance: ADAPALENE
     Indication: PRODUCT USED FOR UNKNOWN INDICATION
     Route: 065
     Dates: start: 20180219
  5. PREDNISONE. [Concomitant]
     Active Substance: PREDNISONE
     Indication: PRODUCT USED FOR UNKNOWN INDICATION
     Route: 048
     Dates: start: 20180131
  6. PROAIR HFA [Concomitant]
     Active Substance: ALBUTEROL SULFATE
     Indication: PRODUCT USED FOR UNKNOWN INDICATION
     Route: 055
     Dates: start: 20180219
  7. VITAMIN D3 [Concomitant]
     Active Substance: CHOLECALCIFEROL
     Indication: PRODUCT USED FOR UNKNOWN INDICATION
     Route: 048
     Dates: start: 20180131
  8. CLARITIN [Concomitant]
     Active Substance: LORATADINE
     Indication: PRODUCT USED FOR UNKNOWN INDICATION
     Route: 065
  9. OTEZLA [Suspect]
     Active Substance: APREMILAST
     Indication: RHEUMATOID ARTHRITIS
     Dosage: 60 MILLIGRAM
     Route: 048

REACTIONS (8)
  - Nasopharyngitis [Not Recovered/Not Resolved]
  - Asthma [Unknown]
  - Upper respiratory tract infection [Unknown]
  - Conjunctivitis [Unknown]
  - Pharyngeal erythema [Unknown]
  - Pain [Unknown]
  - Ear pain [Not Recovered/Not Resolved]
  - Diarrhoea [Not Recovered/Not Resolved]

NARRATIVE: CASE EVENT DATE: 2018
